FAERS Safety Report 7885126-2 (Version None)
Quarter: 2011Q4

REPORT INFORMATION
  Report Type: 
  Country: None (occurrence: None)
  Receive Date: 20111102
  Receipt Date: 20111027
  Transmission Date: 20120403
  Serious: Yes (Death, Hospitalization)
  Sender: FDA-Public Use
  Company Number: US-ROCHE-1008536

PATIENT
  Age: 56 Year
  Sex: Male

DRUGS (5)
  1. PERCOCET [Concomitant]
  2. ACTIVASE [Suspect]
     Indication: PRODUCT USED FOR UNKNOWN INDICATION
     Route: 065
  3. ASPIRIN [Concomitant]
  4. LOVENOX [Concomitant]
  5. LIPITOR [Concomitant]

REACTIONS (2)
  - DEATH [None]
  - CEREBRAL HAEMORRHAGE [None]
